FAERS Safety Report 18516053 (Version 2)
Quarter: 2020Q4

REPORT INFORMATION
  Report Type: Spontaneous
  Country: JP (occurrence: JP)
  Receive Date: 20201118
  Receipt Date: 20201211
  Transmission Date: 20210114
  Serious: Yes (Other)
  Sender: FDA-Public Use
  Company Number: NVSJ2020JP008699

PATIENT
  Age: 69 Year
  Sex: Female

DRUGS (1)
  1. BEOVU [Suspect]
     Active Substance: BROLUCIZUMAB-DBLL
     Indication: AGE-RELATED MACULAR DEGENERATION
     Dosage: UNK
     Route: 031
     Dates: start: 20200801, end: 20200801

REACTIONS (7)
  - Iritis [Recovering/Resolving]
  - Anterior chamber cell [Unknown]
  - Blindness transient [Unknown]
  - Keratic precipitates [Unknown]
  - Vitreal cells [Unknown]
  - Vitreous floaters [Unknown]
  - Anterior chamber flare [Unknown]

NARRATIVE: CASE EVENT DATE: 20200820
